FAERS Safety Report 12296722 (Version 1)
Quarter: 2016Q2

REPORT INFORMATION
  Report Type: Spontaneous
  Country: US (occurrence: US)
  Receive Date: 20160422
  Receipt Date: 20160422
  Transmission Date: 20160815
  Serious: No
  Sender: FDA-Public Use
  Company Number: US-BIOGEN-2016BI00220486

PATIENT
  Sex: Female

DRUGS (1)
  1. AVONEX [Suspect]
     Active Substance: INTERFERON BETA-1A
     Indication: MULTIPLE SCLEROSIS
     Route: 065
     Dates: start: 20001213

REACTIONS (10)
  - Exposure via direct contact [Unknown]
  - Gait disturbance [Unknown]
  - Underdose [Not Recovered/Not Resolved]
  - Injection site haemorrhage [Unknown]
  - Headache [Unknown]
  - Multiple sclerosis relapse [Unknown]
  - Lethargy [Unknown]
  - Injection site pain [Unknown]
  - Gastroenteritis viral [Unknown]
  - Cognitive disorder [Unknown]

NARRATIVE: CASE EVENT DATE: 2007
